FAERS Safety Report 25498255 (Version 4)
Quarter: 2025Q3

REPORT INFORMATION
  Report Type: Spontaneous
  Country: EU (occurrence: EU)
  Receive Date: 20250701
  Receipt Date: 20250804
  Transmission Date: 20251021
  Serious: Yes (Other)
  Sender: BAUSCH AND LOMB
  Company Number: EU-BAUSCHBL-2025BNL011056

PATIENT
  Age: 59 Year
  Sex: Female

DRUGS (2)
  1. OFLOXACIN [Suspect]
     Active Substance: OFLOXACIN
     Indication: Hordeolum
     Route: 047
     Dates: start: 20250602, end: 20250613
  2. PHENPROCOUMON [Concomitant]
     Active Substance: PHENPROCOUMON
     Indication: Cerebrovascular accident

REACTIONS (4)
  - Visual impairment [Recovering/Resolving]
  - Diplopia [Recovering/Resolving]
  - Impaired quality of life [Not Recovered/Not Resolved]
  - Vision blurred [Recovering/Resolving]

NARRATIVE: CASE EVENT DATE: 20250601
